FAERS Safety Report 5320280-8 (Version None)
Quarter: 2007Q2

REPORT INFORMATION
  Report Type: 
  Country: None (occurrence: None)
  Receive Date: 20070503
  Receipt Date: 20070503
  Transmission Date: 20071010
  Serious: Yes (Hospitalization)
  Sender: FDA-Public Use
  Company Number: None

PATIENT
  Sex: Female
  Weight: 74 kg

DRUGS (5)
  1. CISPLATIN [Suspect]
     Dosage: 91 MG
  2. DOXORUBICIN HYDROCHLORIDE [Suspect]
     Dosage: 55 MG
  3. G-CSF (FILGRASTIM, AMGEN) [Suspect]
     Dosage: 6 MG
  4. TAXOL [Suspect]
     Dosage: 229 MG
  5. COUMADIN [Concomitant]

REACTIONS (10)
  - BLOOD CREATININE INCREASED [None]
  - DEHYDRATION [None]
  - DIARRHOEA [None]
  - HAEMOGLOBIN DECREASED [None]
  - INTERNATIONAL NORMALISED RATIO INCREASED [None]
  - NAUSEA [None]
  - NEUTROPHIL COUNT DECREASED [None]
  - STOMATITIS [None]
  - VOMITING [None]
  - WHITE BLOOD CELL COUNT DECREASED [None]
